FAERS Safety Report 6203626-8 (Version None)
Quarter: 2009Q2

REPORT INFORMATION
  Report Type: 
  Country: None (occurrence: None)
  Receive Date: 20090521
  Receipt Date: 20090511
  Transmission Date: 20091009
  Serious: Yes (Hospitalization)
  Sender: FDA-Public Use
  Company Number: 2009AL002727

PATIENT
  Age: 67 Year
  Sex: Female

DRUGS (3)
  1. DIGOXIN [Suspect]
     Indication: ARRHYTHMIA
     Dosage: 0.125MG, DAILY, PO
     Route: 048
  2. METOPROLOL SUCCINATE [Concomitant]
  3. ASPIRIN [Concomitant]

REACTIONS (6)
  - DECREASED ACTIVITY [None]
  - FATIGUE [None]
  - HEAD INJURY [None]
  - HYPERHIDROSIS [None]
  - SYNCOPE [None]
  - WEIGHT DECREASED [None]
